FAERS Safety Report 8875533 (Version 2)
Quarter: 2012Q4

REPORT INFORMATION
  Report Type: 
  Country: ES (occurrence: ES)
  Receive Date: 20121029
  Receipt Date: 20121123
  Transmission Date: 20130627
  Serious: Yes (Death, Other)
  Sender: FDA-Public Use
  Company Number: ES-PFIZER INC-2012265046

PATIENT
  Age: 52 Year
  Sex: Male

DRUGS (1)
  1. LINEZOLID [Suspect]
     Indication: SEPTIC SHOCK
     Dosage: UNK

REACTIONS (2)
  - Off label use [Fatal]
  - Pathogen resistance [Fatal]
